FAERS Safety Report 7528644-9 (Version None)
Quarter: 2011Q2

REPORT INFORMATION
  Report Type: 
  Country: None (occurrence: None)
  Receive Date: 20110607
  Receipt Date: 20110603
  Transmission Date: 20111010
  Serious: Yes (Life-Threatening)
  Sender: FDA-Public Use
  Company Number: JP-PFIZER INC-2011121232

PATIENT
  Sex: Male

DRUGS (1)
  1. EPLERENONE [Suspect]

REACTIONS (2)
  - HYPERKALAEMIA [None]
  - CARDIAC ARREST [None]
